FAERS Safety Report 15067846 (Version 1)
Quarter: 2018Q2

REPORT INFORMATION
  Report Type: Spontaneous
  Country: US (occurrence: US)
  Receive Date: 20180625
  Receipt Date: 20180625
  Transmission Date: 20180711
  Serious: No
  Sender: FDA-Public Use
  Company Number: None

PATIENT
  Age: 70 Year
  Sex: Female
  Weight: 147.42 kg

DRUGS (7)
  1. VALIUM [Concomitant]
     Active Substance: DIAZEPAM
  2. TYLENOL (GENERIC) ALTERNATE [Concomitant]
  3. VALIUM [Suspect]
     Active Substance: DIAZEPAM
     Indication: ANXIETY DISORDER
     Dosage: ?          QUANTITY:30 DF DOSAGE FORM;?
     Route: 048
     Dates: start: 20180101
  4. LISINOPRIL. [Concomitant]
     Active Substance: LISINOPRIL
  5. METOPROLO [Concomitant]
     Active Substance: METOPROLOL
  6. XARELTO [Concomitant]
     Active Substance: RIVAROXABAN
  7. ADVIL [Concomitant]
     Active Substance: IBUPROFEN

REACTIONS (3)
  - Drug ineffective [None]
  - Helicobacter infection [None]
  - Product quality issue [None]

NARRATIVE: CASE EVENT DATE: 20180108
